FAERS Safety Report 4810102-3 (Version None)
Quarter: 2005Q4

REPORT INFORMATION
  Report Type: 
  Country: None (occurrence: None)
  Receive Date: 20051026
  Receipt Date: 20051018
  Transmission Date: 20060501
  Serious: Yes (Other)
  Sender: FDA-Public Use
  Company Number: 2005SE06049

PATIENT
  Age: 5 Month
  Sex: Male

DRUGS (1)
  1. DIPRIVAN [Suspect]
     Indication: CARDIAC OPERATION
     Dates: end: 20051013

REACTIONS (3)
  - DYSKINESIA [None]
  - MUSCLE TWITCHING [None]
  - POST PROCEDURAL COMPLICATION [None]
